FAERS Safety Report 9720625 (Version 1)
Quarter: 2013Q4

REPORT INFORMATION
  Report Type: Spontaneous
  Country: FR (occurrence: FR)
  Receive Date: 20131129
  Receipt Date: 20131129
  Transmission Date: 20140711
  Serious: Yes (Hospitalization)
  Sender: FDA-Public Use
  Company Number: PHHY2013FR136285

PATIENT
  Age: 56 Year
  Sex: Male

DRUGS (4)
  1. EXFORGE [Suspect]
     Indication: HYPERTENSION
     Dosage: 1 DF (160 MG VALS, 10 MG AMLO), QD
     Route: 048
  2. PLAVIX [Concomitant]
     Indication: CEREBROVASCULAR ACCIDENT PROPHYLAXIS
     Dosage: UNK UKN, QD
     Route: 048
     Dates: start: 2012
  3. ATORVASTATIN [Concomitant]
     Indication: HYPERCHOLESTEROLAEMIA
     Dosage: 40 MG, QD
     Route: 048
  4. CIALIS [Concomitant]
     Indication: ERECTILE DYSFUNCTION
     Dosage: UNK UKN, UNK

REACTIONS (2)
  - Cerebrovascular accident [Recovered/Resolved]
  - Ejaculation disorder [Not Recovered/Not Resolved]
